FAERS Safety Report 16031629 (Version 1)
Quarter: 2019Q1

REPORT INFORMATION
  Report Type: Spontaneous
  Country: US (occurrence: US)
  Receive Date: 20190304
  Receipt Date: 20190304
  Transmission Date: 20190418
  Serious: No
  Sender: FDA-Public Use
  Company Number: US-IMPAX LABORATORIES, LLC-2018-IPXL-01859

PATIENT
  Age: 66 Year
  Sex: Male
  Weight: 64 kg

DRUGS (8)
  1. LATANAPROST [Concomitant]
     Active Substance: LATANOPROST
     Indication: CATARACT
     Dosage: UNK, ONCE A DAY
     Route: 047
  2. RYTARY [Suspect]
     Active Substance: CARBIDOPA\LEVODOPA
     Dosage: 36.25/145 MG, THREE CAPSULES, EVERY FOUR HOURS
     Route: 048
     Dates: start: 2018
  3. TAMSULOSIN [Concomitant]
     Active Substance: TAMSULOSIN
     Indication: URINARY TRACT DISORDER
     Dosage: 0.4 MG, ONCE A DAY
     Route: 048
  4. RYTARY [Suspect]
     Active Substance: CARBIDOPA\LEVODOPA
     Indication: PARKINSON^S DISEASE
     Dosage: 48.75/195 MG, TWO CAPSULES, EVERY FOUR HOURS
     Route: 048
     Dates: start: 20180522, end: 2018
  5. ASPIRIN. [Concomitant]
     Active Substance: ASPIRIN
     Indication: PRODUCT USED FOR UNKNOWN INDICATION
     Dosage: 81 MG, ONCE A DAY
     Route: 048
  6. TIMOLOL. [Concomitant]
     Active Substance: TIMOLOL
     Indication: CATARACT
     Dosage: 0.05 %, ONCE A DAY
     Route: 047
  7. RYTARY [Suspect]
     Active Substance: CARBIDOPA\LEVODOPA
     Dosage: 36.25/145 MG, TWO CAPSULES, EVERY FOUR HOURS
     Route: 048
     Dates: start: 2018, end: 2018
  8. AMANTADINE. [Concomitant]
     Active Substance: AMANTADINE HYDROCHLORIDE
     Indication: PARKINSON^S DISEASE
     Dosage: 100 MG, THREE TIMES A DAY
     Route: 048

REACTIONS (6)
  - Incorrect dose administered [Unknown]
  - Malaise [Recovered/Resolved]
  - Tremor [Recovered/Resolved]
  - Anxiety [Recovered/Resolved]
  - Product dispensing error [Unknown]
  - Depression [Recovered/Resolved]

NARRATIVE: CASE EVENT DATE: 2018
